FAERS Safety Report 13586549 (Version 2)
Quarter: 2017Q2

REPORT INFORMATION
  Report Type: Report from Study
  Country: US (occurrence: US)
  Receive Date: 20170526
  Receipt Date: 20170626
  Transmission Date: 20170830
  Serious: Yes (Death)
  Sender: FDA-Public Use
  Company Number: US-PFIZER INC-2017231662

PATIENT
  Age: 51 Year
  Sex: Male

DRUGS (10)
  1. SUPERSATURATED CALCIUM AND PHOSPHATE RINSE [Concomitant]
     Indication: THERAPEUTIC PROCEDURE
     Dosage: UNK
     Route: 048
  2. DEXAMETHASONE. [Concomitant]
     Active Substance: DEXAMETHASONE
     Indication: SUPPORTIVE CARE
     Dosage: 8 MG TWICE PER DAY FROM DAY -9 TO -2
     Route: 042
  3. GLUTAMINE [Concomitant]
     Active Substance: GLUTAMINE
     Indication: THERAPEUTIC PROCEDURE
     Dosage: UNK
     Route: 048
  4. GEMCITABINE HYDROCHLORIDE. [Suspect]
     Active Substance: GEMCITABINE HYDROCHLORIDE
     Dosage: 1800 MG/M2, UNK (CONTINUOUS INFUSION, OVER 3 H AT 10 MG/M2 PER MIN) (HIGH DOSE)
  5. PHENYTOIN. [Concomitant]
     Active Substance: PHENYTOIN
     Dosage: 300-600 MG/DAY FROM DAY -9 TO -4
  6. PALIFERMIN [Concomitant]
     Active Substance: PALIFERMIN
     Indication: THERAPEUTIC PROCEDURE
     Dosage: UNK
     Route: 048
  7. GEMCITABINE HYDROCHLORIDE. [Suspect]
     Active Substance: GEMCITABINE HYDROCHLORIDE
     Indication: PLASMA CELL MYELOMA
     Dosage: 75 MG/M2, UNK (ON DAYS -8 AND -3 AS A LOADING BOLUS)
     Route: 040
  8. BUSULFAN. [Suspect]
     Active Substance: BUSULFAN
     Indication: PLASMA CELL MYELOMA
     Dosage: 32 MG/M2, (INTRAVENOUS TEST DOSE), (DURING 60 MIN IN THE PREADMISSION WEEK)
     Route: 042
  9. BUSULFAN. [Suspect]
     Active Substance: BUSULFAN
     Dosage: 4000 UMOL/L PER MIN (ONCE PER DAY FROM DAYS -8 TO -5 OVER 3 H, TARGETINGAN AVERAGE DAILY AUC)
  10. MELPHALAN. [Suspect]
     Active Substance: MELPHALAN
     Indication: PLASMA CELL MYELOMA
     Dosage: 60 MG/M2 PER DAY (OVER 30 MIN ON DAYS -3 AND -2)
     Route: 042

REACTIONS (2)
  - Enterocolitis [Fatal]
  - Escherichia sepsis [Fatal]
